FAERS Safety Report 5115294-7 (Version None)
Quarter: 2006Q3

REPORT INFORMATION
  Report Type: 
  Country: None (occurrence: None)
  Receive Date: 20060926
  Receipt Date: 20060920
  Transmission Date: 20061208
  Serious: Yes (Other)
  Sender: FDA-Public Use
  Company Number: DE-GLAXOSMITHKLINE-D0050944A

PATIENT
  Sex: Male

DRUGS (1)
  1. EPIVIR [Suspect]
     Route: 065

REACTIONS (2)
  - HYPOGLYCAEMIA [None]
  - NEUTROPENIA [None]
